FAERS Safety Report 15999394 (Version 1)
Quarter: 2019Q1

REPORT INFORMATION
  Report Type: Spontaneous
  Country: US (occurrence: US)
  Receive Date: 20190222
  Receipt Date: 20190222
  Transmission Date: 20190418
  Serious: No
  Sender: FDA-Public Use
  Company Number: None

PATIENT
  Age: 5 Month
  Sex: Female

DRUGS (1)
  1. TETRACAINE 0.5% VISCOUS OPHTHALMIC SOLUTION [Suspect]
     Active Substance: TETRACAINE
     Route: 047
     Dates: start: 20190118, end: 20190118

REACTIONS (4)
  - Wrong product stored [None]
  - Product dispensing error [None]
  - Product use complaint [None]
  - Product label confusion [None]

NARRATIVE: CASE EVENT DATE: 20190118
